FAERS Safety Report 5843333-4 (Version None)
Quarter: 2008Q3

REPORT INFORMATION
  Report Type: 
  Country: None (occurrence: None)
  Receive Date: 20080808
  Receipt Date: 20080730
  Transmission Date: 20090109
  Serious: Yes (Death, Disabling)
  Sender: FDA-Public Use
  Company Number: OSCN-NO-0808L-0473

PATIENT
  Age: 59 Year
  Sex: Female

DRUGS (2)
  1. OMNISCAN [Suspect]
     Indication: DRUG USE FOR UNKNOWN INDICATION
     Dosage: THREE MRAS WITH OMNISCAN WITHIN A YEAR PRIOR TO DEVELOPING NSF, DOSES NOT REPORTED, SINGLE DOSE, I.V
     Route: 042
  2. EPOGEN [Concomitant]

REACTIONS (3)
  - ACTIVITIES OF DAILY LIVING IMPAIRED [None]
  - NEPHROGENIC SYSTEMIC FIBROSIS [None]
  - PNEUMONIA [None]
